FAERS Safety Report 5892763-3 (Version None)
Quarter: 2008Q3

REPORT INFORMATION
  Report Type: 
  Country: None (occurrence: None)
  Receive Date: 20080919
  Receipt Date: 20080919
  Transmission Date: 20090109
  Serious: Yes (Hospitalization)
  Sender: FDA-Public Use
  Company Number: None

PATIENT
  Sex: Female
  Weight: 25.4 kg

DRUGS (10)
  1. BLEOMYCIN SULFATE [Suspect]
     Dosage: 3.6 UNIT
  2. CYCLOPHOSPHAMIDE [Suspect]
     Dosage: 736 MG
  3. DOXORUBICIN HYDROCHLORIDE [Suspect]
     Dosage: 23 MG
  4. ETOPOSIDE [Suspect]
     Dosage: 115 MG
  5. G-CSF (FILGRASTIM, AMGEN) [Suspect]
     Dosage: 130 MCG
  6. PREDNISONE [Suspect]
     Dosage: 35 MG
  7. VINCRISTINE SULFATE [Suspect]
     Dosage: 1.3 MG
  8. BACTRIM [Concomitant]
  9. ZANTAC [Concomitant]
  10. ZOFRAN [Concomitant]

REACTIONS (11)
  - BLOOD CULTURE POSITIVE [None]
  - CEREBRAL INFARCTION [None]
  - CHILLS [None]
  - GRAND MAL CONVULSION [None]
  - HAEMOGLOBIN DECREASED [None]
  - KLEBSIELLA INFECTION [None]
  - MUSCLE TWITCHING [None]
  - MUSCULAR WEAKNESS [None]
  - NEUTROPHIL COUNT DECREASED [None]
  - OXYGEN SATURATION DECREASED [None]
  - PLATELET COUNT DECREASED [None]
